FAERS Safety Report 24845771 (Version 2)
Quarter: 2025Q1

REPORT INFORMATION
  Report Type: Report from Study
  Country: MX (occurrence: MX)
  Receive Date: 20250115
  Receipt Date: 20250225
  Transmission Date: 20250408
  Serious: Yes (Other)
  Sender: NOVARTIS
  Company Number: MX-002147023-NVSC2025MX005785

PATIENT
  Sex: Male
  Weight: 63.5 kg

DRUGS (3)
  1. HYDROCHLOROTHIAZIDE\VALSARTAN [Suspect]
     Active Substance: HYDROCHLOROTHIAZIDE\VALSARTAN
     Indication: Hypertension
     Dosage: 1 DOSAGE FORM (160/12.5 MG), QD (STARTED 12 YEARS AGO)
     Route: 048
     Dates: end: 20240711
  2. HYDROCHLOROTHIAZIDE\VALSARTAN [Suspect]
     Active Substance: HYDROCHLOROTHIAZIDE\VALSARTAN
     Dosage: 1 DOSAGE FORM (80/12.5 MG), QD
     Route: 048
     Dates: start: 202407
  3. HYDROCHLOROTHIAZIDE\VALSARTAN [Suspect]
     Active Substance: HYDROCHLOROTHIAZIDE\VALSARTAN
     Dosage: UNK, QD (80/12.5MG)
     Route: 048
     Dates: start: 20240712

REACTIONS (6)
  - Cataract [Recovered/Resolved]
  - Infarction [Recovered/Resolved]
  - Blood pressure decreased [Recovered/Resolved]
  - Dizziness [Unknown]
  - COVID-19 [Unknown]
  - Weight decreased [Unknown]

NARRATIVE: CASE EVENT DATE: 20190101
